FAERS Safety Report 11705619 (Version 1)
Quarter: 2015Q4

REPORT INFORMATION
  Report Type: Spontaneous
  Country: GB (occurrence: GB)
  Receive Date: 20151106
  Receipt Date: 20151106
  Transmission Date: 20160304
  Serious: Yes (Hospitalization)
  Sender: FDA-Public Use
  Company Number: GB-TEVA-606165ISR

PATIENT
  Sex: Male

DRUGS (4)
  1. MYFENAX [Suspect]
     Active Substance: MYCOPHENOLATE MOFETIL
     Route: 048
  2. SANDOZ ADOPORT [Suspect]
     Active Substance: TACROLIMUS
     Route: 048
  3. MYFENAX [Suspect]
     Active Substance: MYCOPHENOLATE MOFETIL
     Indication: IMMUNOSUPPRESSION
     Route: 048
  4. SANDOZ ADOPORT [Suspect]
     Active Substance: TACROLIMUS
     Route: 048

REACTIONS (4)
  - Renal pain [Unknown]
  - Pancreatic disorder [None]
  - Blood disorder [None]
  - Angina pectoris [Unknown]
